FAERS Safety Report 9116038 (Version 1)
Quarter: 2013Q1

REPORT INFORMATION
  Report Type: Spontaneous
  Country: PH (occurrence: PH)
  Receive Date: 20130225
  Receipt Date: 20130225
  Transmission Date: 20140127
  Serious: Yes (Death)
  Sender: FDA-Public Use
  Company Number: PH-BAXTER-2013BAX006859

PATIENT
  Age: 4 Year
  Sex: Male

DRUGS (1)
  1. DIANEAL PD2 WITH 2.5% DEXTROSE [Suspect]
     Indication: PERITONEAL DIALYSIS
     Route: 033
     Dates: start: 20130215

REACTIONS (3)
  - Cardio-respiratory arrest [Fatal]
  - Disseminated intravascular coagulation [Fatal]
  - Hypovolaemic shock [Fatal]
